FAERS Safety Report 7324121-9 (Version None)
Quarter: 2011Q1

REPORT INFORMATION
  Report Type: 
  Country: None (occurrence: None)
  Receive Date: 20110201
  Receipt Date: 20100510
  Transmission Date: 20110831
  Serious: Yes (Other)
  Sender: FDA-Public Use
  Company Number: WAES 1005USA00923

PATIENT
  Sex: Male

DRUGS (1)
  1. PRIMAXIN [Suspect]

REACTIONS (1)
  - CONVULSION [None]
